FAERS Safety Report 5715480-9 (Version None)
Quarter: 2008Q2

REPORT INFORMATION
  Report Type: 
  Country: None (occurrence: None)
  Receive Date: 20080422
  Receipt Date: 20080408
  Transmission Date: 20081010
  Serious: Yes (Other)
  Sender: FDA-Public Use
  Company Number: 163-21880-08011650

PATIENT
  Age: 53 Year
  Sex: Male
  Weight: 79.3795 kg

DRUGS (3)
  1. REVLIMID [Suspect]
     Indication: MULTIPLE MYELOMA
     Dosage: 25 MG, DAILY X21 DAYS, ORAL
     Route: 048
     Dates: start: 20071204
  2. PLAVIX [Concomitant]
  3. SIMVASTATIN (SIMVASTATIN) (TABLETS) [Concomitant]

REACTIONS (2)
  - ARTERIOSPASM CORONARY [None]
  - CORONARY ARTERY OCCLUSION [None]
